FAERS Safety Report 16762669 (Version 2)
Quarter: 2019Q4

REPORT INFORMATION
  Report Type: Spontaneous
  Country: US (occurrence: US)
  Receive Date: 20190901
  Receipt Date: 20191017
  Transmission Date: 20200122
  Serious: Yes (Other)
  Sender: FDA-Public Use
  Company Number: PHEH2019US035685

PATIENT
  Sex: Female
  Weight: 92.99 kg

DRUGS (1)
  1. VOTRIENT [Suspect]
     Active Substance: PAZOPANIB HYDROCHLORIDE
     Indication: RENAL CANCER
     Dosage: 2 DF, QD
     Route: 065

REACTIONS (4)
  - Metastases to spine [Unknown]
  - Hypertension [Unknown]
  - Cerebral haemorrhage [Unknown]
  - Abdominal discomfort [Unknown]
